FAERS Safety Report 17487911 (Version 4)
Quarter: 2020Q1

REPORT INFORMATION
  Report Type: Spontaneous
  Country: US (occurrence: US)
  Receive Date: 20200303
  Receipt Date: 20200317
  Transmission Date: 20200409
  Serious: No
  Sender: FDA-Public Use
  Company Number: US-PFIZER INC-2019367311

PATIENT
  Age: 66 Year
  Sex: Female
  Weight: 66 kg

DRUGS (3)
  1. LYRICA [Suspect]
     Active Substance: PREGABALIN
     Indication: NEUROPATHY PERIPHERAL
     Dosage: 2 DF, UNK (TWO PILLS )
  2. LYRICA [Suspect]
     Active Substance: PREGABALIN
     Dosage: 1 DF, UNK (ANOTHER PILL CLOSER TO 3 AM)
  3. LYRICA [Suspect]
     Active Substance: PREGABALIN
     Indication: RESTLESS LEGS SYNDROME
     Dosage: 150 MG, 1X/DAY (BED TIME)
     Route: 048

REACTIONS (7)
  - Feeling abnormal [Unknown]
  - Hypertension [Unknown]
  - Frustration tolerance decreased [Unknown]
  - Insomnia [Unknown]
  - Intentional product use issue [Unknown]
  - Anger [Unknown]
  - Middle insomnia [Unknown]
